FAERS Safety Report 7631812-9 (Version None)
Quarter: 2011Q3

REPORT INFORMATION
  Report Type: 
  Country: None (occurrence: None)
  Receive Date: 20110725
  Receipt Date: 20110405
  Transmission Date: 20111222
  Serious: No
  Sender: FDA-Public Use
  Company Number: US-BRISTOL-MYERS SQUIBB COMPANY-15654726

PATIENT
  Sex: Female

DRUGS (2)
  1. COUMADIN [Suspect]
     Dates: start: 20100701, end: 20101001
  2. LOVENOX [Suspect]
     Dosage: LOVENOX 100MG/ML INJECTION.
     Dates: start: 20100701, end: 20101001

REACTIONS (2)
  - TINNITUS [None]
  - VISUAL ACUITY REDUCED [None]
